FAERS Safety Report 25701136 (Version 1)
Quarter: 2025Q3

REPORT INFORMATION
  Report Type: Spontaneous
  Country: US (occurrence: None)
  Receive Date: 20250819
  Receipt Date: 20250819
  Transmission Date: 20251020
  Serious: Yes (Other)
  Sender: FDA-CTU
  Company Number: None

PATIENT
  Age: 50 Year
  Sex: Female
  Weight: 114 kg

DRUGS (11)
  1. RINVOQ [Suspect]
     Active Substance: UPADACITINIB
     Indication: Rheumatoid arthritis
     Dosage: FREQUENCY : DAILY;?
     Route: 048
     Dates: start: 20250714, end: 20250721
  2. PREDNISONE [Concomitant]
     Active Substance: PREDNISONE
  3. omeprazola [Concomitant]
  4. ADVAIR HFA [Concomitant]
     Active Substance: FLUTICASONE PROPIONATE\SALMETEROL XINAFOATE
  5. VITAMINS [Concomitant]
     Active Substance: VITAMINS
  6. ROSUVASTATIN [Concomitant]
     Active Substance: ROSUVASTATIN
  7. valacyclovlr [Concomitant]
  8. NURTEC ODT [Concomitant]
     Active Substance: RIMEGEPANT SULFATE
  9. METOPROLOL SUCCINATE [Concomitant]
     Active Substance: METOPROLOL SUCCINATE
  10. HYOSCYAMINE [Concomitant]
     Active Substance: HYOSCYAMINE
  11. CETIRIZINE [Concomitant]
     Active Substance: CETIRIZINE HYDROCHLORIDE

REACTIONS (4)
  - Tendonitis [None]
  - Weight bearing difficulty [None]
  - Tendon rupture [None]
  - Gait inability [None]

NARRATIVE: CASE EVENT DATE: 20250721
